FAERS Safety Report 12313338 (Version 1)
Quarter: 2016Q2

REPORT INFORMATION
  Report Type: Spontaneous
  Country: US (occurrence: None)
  Receive Date: 20160427
  Receipt Date: 20160427
  Transmission Date: 20160815
  Serious: Yes (Disabling)
  Sender: FDA-Public Use
  Company Number: None

PATIENT
  Age: 54 Year
  Sex: Female
  Weight: 68.04 kg

DRUGS (6)
  1. ZYRTEC [Concomitant]
     Active Substance: CETIRIZINE HYDROCHLORIDE
  2. CERVICAL PILLOW [Concomitant]
  3. ICE PACKS [Concomitant]
  4. SPLINTS [Concomitant]
  5. CIPROFLOXACIN HCL, 500 MG BAYER [Suspect]
     Active Substance: CIPROFLOXACIN HYDROCHLORIDE
     Indication: DIVERTICULITIS
     Route: 048
     Dates: start: 20140724, end: 20140801
  6. TENS UNIT [Concomitant]

REACTIONS (8)
  - Musculoskeletal pain [None]
  - Pain in extremity [None]
  - Arthralgia [None]
  - Tendonitis [None]
  - Dysstasia [None]
  - Tendon pain [None]
  - Impaired work ability [None]
  - Activities of daily living impaired [None]

NARRATIVE: CASE EVENT DATE: 20140814
